FAERS Safety Report 6538730-8 (Version None)
Quarter: 2010Q1

REPORT INFORMATION
  Report Type: 
  Country: None (occurrence: None)
  Receive Date: 20100114
  Receipt Date: 20100114
  Transmission Date: 20100710
  Serious: Yes (Death, Hospitalization)
  Sender: FDA-Public Use
  Company Number: None

PATIENT
  Age: 59 Year
  Sex: Male
  Weight: 83 kg

DRUGS (1)
  1. AUGMENTIN [Suspect]
     Indication: SKIN INFECTION
     Dosage: 1000 MG UNK ORAL 047
     Route: 048

REACTIONS (7)
  - COAGULOPATHY [None]
  - ENCEPHALOPATHY [None]
  - HYPOTENSION [None]
  - JAUNDICE [None]
  - NAUSEA [None]
  - RENAL FAILURE [None]
  - VOMITING [None]
